FAERS Safety Report 9087121 (Version 2)
Quarter: 2013Q1

REPORT INFORMATION
  Report Type: Spontaneous
  Country: US (occurrence: US)
  Receive Date: 20130131
  Receipt Date: 20130225
  Transmission Date: 20140127
  Serious: Yes (Other)
  Sender: FDA-Public Use
  Company Number: US-PFIZER INC-2013038997

PATIENT
  Age: 46 Year
  Sex: Female
  Weight: 73.92 kg

DRUGS (19)
  1. ZOLOFT [Suspect]
     Indication: DEPRESSION
     Dosage: UNK, 1X/DAY
  2. ALDACTONE [Suspect]
     Indication: HYPERTENSION
     Dosage: 25 MG, 1X/DAY
  3. CALAN SR [Suspect]
     Indication: HYPERTENSION
     Dosage: 180 MG, 1X/DAY
  4. NEURONTIN [Concomitant]
     Dosage: 600 MG, UNK
  5. DIOVANE [Concomitant]
     Dosage: 80 MG, UNK
  6. METHOCARBAMOL [Concomitant]
     Dosage: 750 MG, AS NEEDED
  7. NEXIUM [Concomitant]
     Dosage: 40 MG, 2X/DAY
  8. ZOMIG [Concomitant]
     Indication: MIGRAINE
     Dosage: 2.5 MG, AS NEEDED
  9. HYDROCODONE W/ACETAMINOPHEN [Concomitant]
     Indication: PAIN
     Dosage: 10/325
  10. SINGULAIR [Concomitant]
     Dosage: 10 MG, 1X/DAY
  11. PRAVASTATIN [Concomitant]
     Dosage: 40 MG, 1X/DAY
  12. TRAMADOL [Concomitant]
     Dosage: 100 MG(BY TAKING TWO TABLETS OF 50MG), 4X/DAY
  13. COMBIVENT [Concomitant]
     Dosage: UNK
  14. SYMBICORT [Concomitant]
     Dosage: UNK
  15. VOLTAREN [Concomitant]
     Dosage: 1 PERCENT, 4X/DAY
  16. PROMETHAZINE [Concomitant]
     Indication: NAUSEA
     Dosage: 25 MG, UNK
     Route: 048
  17. EPIPEN [Concomitant]
     Indication: ARTHROPOD STING
     Dosage: UNK
  18. EPIPEN [Concomitant]
     Indication: FOOD ALLERGY
  19. BETAMETHASONE [Concomitant]
     Dosage: 0.05 PERCENT

REACTIONS (1)
  - Spinal cord injury [Unknown]
